FAERS Safety Report 20060590 (Version 2)
Quarter: 2021Q4

REPORT INFORMATION
  Report Type: Report from Study
  Country: CZ (occurrence: CZ)
  Receive Date: 20211112
  Receipt Date: 20211223
  Transmission Date: 20220303
  Serious: Yes (Hospitalization)
  Sender: FDA-Public Use
  Company Number: CZ-ABBVIE-21K-217-4154621-00

PATIENT
  Age: 48 Year
  Sex: Male
  Weight: 137 kg

DRUGS (2)
  1. HUMIRA [Suspect]
     Active Substance: ADALIMUMAB
     Indication: Hidradenitis
     Route: 058
     Dates: start: 20181023, end: 20210612
  2. HUMIRA [Suspect]
     Active Substance: ADALIMUMAB
     Route: 058
     Dates: start: 20210702

REACTIONS (6)
  - Mineral metabolism disorder [Recovering/Resolving]
  - Abscess [Recovering/Resolving]
  - Infection [Recovering/Resolving]
  - Dehydration [Recovering/Resolving]
  - Abdominal abscess [Recovering/Resolving]
  - Abscess [Recovering/Resolving]

NARRATIVE: CASE EVENT DATE: 20210612
